FAERS Safety Report 8985354 (Version 1)
Quarter: 2012Q4

REPORT INFORMATION
  Report Type: 
  Country: US (occurrence: US)
  Receive Date: 20121226
  Receipt Date: 20121226
  Transmission Date: 20130627
  Serious: Yes (Other)
  Sender: FDA-Public Use
  Company Number: US-PFIZER INC-2012326650

PATIENT
  Age: 59 Year
  Sex: Female
  Weight: 63.49 kg

DRUGS (4)
  1. CHANTIX [Suspect]
     Indication: SMOKING CESSATION THERAPY
     Dosage: 0.5 mg, 1x/day
     Route: 048
     Dates: start: 200912
  2. CHANTIX [Suspect]
     Dosage: UNK
     Route: 048
     Dates: end: 201001
  3. CHANTIX [Suspect]
     Dosage: 0.5 mg, 1x/day
     Route: 048
     Dates: start: 201212
  4. HYDROCODONE [Concomitant]
     Dosage: 7.5 mg, UNK

REACTIONS (2)
  - Spinal column stenosis [Unknown]
  - Drug ineffective [Unknown]
